FAERS Safety Report 10552617 (Version 1)
Quarter: 2014Q4

REPORT INFORMATION
  Report Type: Report from Study
  Country: JP (occurrence: JP)
  Receive Date: 20141029
  Receipt Date: 20141029
  Transmission Date: 20150529
  Serious: Yes (Death)
  Sender: FDA-Public Use
  Company Number: JP-BRISTOL-MYERS SQUIBB COMPANY-21538673

PATIENT
  Sex: Male
  Weight: 92 kg

DRUGS (6)
  1. ZETIA [Concomitant]
     Active Substance: EZETIMIBE
     Indication: DYSLIPIDAEMIA
  2. LIVALO [Concomitant]
     Active Substance: PITAVASTATIN CALCIUM
     Indication: DYSLIPIDAEMIA
  3. BYETTA [Suspect]
     Active Substance: EXENATIDE
     Indication: DIABETES MELLITUS
     Dosage: UNTIL 03-OCT-2012, LATER THE DOSE OF THE DRUG WAS INCREASED TO 10 MCG TWICE DAILY ON 04-OCT-2012.
     Route: 058
     Dates: start: 20120705, end: 20140417
  4. GLUFAST [Concomitant]
     Active Substance: MITIGLINIDE
     Dates: end: 20140417
  5. AMARYL [Concomitant]
     Active Substance: GLIMEPIRIDE
  6. LOSARTAN POTASSIUM + HCTZ [Concomitant]
     Active Substance: HYDROCHLOROTHIAZIDE\LOSARTAN
     Indication: HYPERTENSION
     Dates: end: 20140417

REACTIONS (1)
  - Sudden death [Fatal]

NARRATIVE: CASE EVENT DATE: 20140419
